FAERS Safety Report 8294766-0 (Version None)
Quarter: 2012Q2

REPORT INFORMATION
  Report Type: 
  Country: None (occurrence: None)
  Receive Date: 20120418
  Receipt Date: 20111205
  Transmission Date: 20120825
  Serious: Yes (Other)
  Sender: FDA-Public Use
  Company Number: US-MYLANLABS-2011S1022796

PATIENT
  Age: 58 Year
  Sex: Female

DRUGS (6)
  1. SUMATRIPTAN SUCCINATE [Suspect]
     Indication: MIGRAINE
     Route: 048
     Dates: start: 20100601, end: 20111027
  2. PREMARIN [Concomitant]
  3. VERAPAMIL HYDROCHLORIDE [Suspect]
     Indication: HYPERTENSION
     Route: 048
     Dates: start: 20111026, end: 20111028
  4. TOPIRAMATE [Suspect]
     Indication: MIGRAINE
     Route: 048
     Dates: start: 20100501, end: 20110601
  5. TOPIRAMATE [Suspect]
     Route: 048
     Dates: start: 20110701, end: 20110701
  6. VERAPAMIL HYDROCHLORIDE [Suspect]
     Indication: MIGRAINE
     Route: 048
     Dates: start: 20111026, end: 20111028

REACTIONS (4)
  - DRUG INEFFECTIVE [None]
  - DRUG INEFFECTIVE FOR UNAPPROVED INDICATION [None]
  - MIGRAINE [None]
  - BLOOD PRESSURE INCREASED [None]
